FAERS Safety Report 20844176 (Version 2)
Quarter: 2022Q2

REPORT INFORMATION
  Report Type: Report from Study
  Country: US (occurrence: None)
  Receive Date: 20220518
  Receipt Date: 20220615
  Transmission Date: 20220721
  Serious: Yes (Other)
  Sender: FDA-Public Use
  Company Number: 2022A182630

PATIENT
  Sex: Female

DRUGS (2)
  1. LYNPARZA [Suspect]
     Active Substance: OLAPARIB
     Indication: Ovarian cancer
     Route: 048
     Dates: start: 202108, end: 20220530
  2. LYNPARZA [Suspect]
     Active Substance: OLAPARIB
     Indication: Ovarian cancer
     Route: 048
     Dates: start: 20220602

REACTIONS (9)
  - Movement disorder [Recovering/Resolving]
  - Fatigue [Not Recovered/Not Resolved]
  - Nausea [Unknown]
  - Heart rate irregular [Unknown]
  - Bone pain [Unknown]
  - Product dispensing issue [Unknown]
  - White blood cell count decreased [Unknown]
  - Pain in extremity [Unknown]
  - Off label use [Not Recovered/Not Resolved]
